FAERS Safety Report 15921913 (Version 2)
Quarter: 2019Q1

REPORT INFORMATION
  Report Type: Spontaneous
  Country: US (occurrence: US)
  Receive Date: 20190206
  Receipt Date: 20190211
  Transmission Date: 20190417
  Serious: No
  Sender: FDA-Public Use
  Company Number: US-ELI_LILLY_AND_COMPANY-US201902000610

PATIENT
  Sex: Female

DRUGS (2)
  1. HUMALOG JUNIOR KWIKPEN [Suspect]
     Active Substance: INSULIN LISPRO
     Indication: DIABETES MELLITUS
     Dosage: 4 U, DAILY
     Route: 065
     Dates: start: 2016
  2. HUMALOG JUNIOR KWIKPEN [Suspect]
     Active Substance: INSULIN LISPRO
     Dosage: 4 U, DAILY
     Route: 065

REACTIONS (3)
  - Incorrect product administration duration [Unknown]
  - Blood glucose increased [Unknown]
  - Incorrect dose administered [Unknown]
